FAERS Safety Report 25367730 (Version 1)
Quarter: 2025Q2

REPORT INFORMATION
  Report Type: Spontaneous
  Country: IN (occurrence: IN)
  Receive Date: 20250528
  Receipt Date: 20250528
  Transmission Date: 20250716
  Serious: Yes (Death, Other)
  Sender: GLENMARK
  Company Number: IN-GLENMARK PHARMACEUTICALS-2022GMK070672

PATIENT

DRUGS (1)
  1. ABIRATERONE ACETATE [Suspect]
     Active Substance: ABIRATERONE ACETATE
     Indication: Prostate cancer
     Dosage: 4 DOSAGE FORM, OD
     Route: 048

REACTIONS (2)
  - Disease progression [Fatal]
  - Prostate cancer [Fatal]

NARRATIVE: CASE EVENT DATE: 20211229
